FAERS Safety Report 6025198-3 (Version None)
Quarter: 2008Q4

REPORT INFORMATION
  Report Type: 
  Country: None (occurrence: None)
  Receive Date: 20081229
  Receipt Date: 20081229
  Transmission Date: 20090506
  Serious: Yes (Other)
  Sender: FDA-Public Use
  Company Number: None

PATIENT
  Age: 32 Year
  Sex: Female
  Weight: 61.2356 kg

DRUGS (1)
  1. NUVARING [Suspect]
     Indication: CONTRACEPTION
     Dosage: INSERT 1 RING 3 WEEKS VAG
     Route: 067
     Dates: start: 20070225, end: 20081225

REACTIONS (6)
  - ANXIETY [None]
  - DEPRESSION [None]
  - IRRITABLE BOWEL SYNDROME [None]
  - LIBIDO DECREASED [None]
  - MOOD SWINGS [None]
  - PANIC ATTACK [None]
